FAERS Safety Report 8767617 (Version 1)
Quarter: 2012Q4

REPORT INFORMATION
  Report Type: 
  Country: JP (occurrence: JP)
  Receive Date: 20120904
  Receipt Date: 20120904
  Transmission Date: 20130627
  Serious: Yes (Other)
  Sender: FDA-Public Use
  Company Number: JP-JNJFOC-20120900171

PATIENT
  Age: 80 Year
  Sex: Female

DRUGS (3)
  1. FLORID [Suspect]
     Route: 048
  2. FLORID [Suspect]
     Indication: OESOPHAGEAL CANDIDIASIS
     Dosage: 2%
     Route: 048
     Dates: start: 201207
  3. WARFARIN [Interacting]
     Indication: PRODUCT USED FOR UNKNOWN INDICATION
     Route: 065
     Dates: start: 201207, end: 201208

REACTIONS (3)
  - Purpura [Recovered/Resolved]
  - Drug interaction [Recovered/Resolved]
  - International normalised ratio increased [Recovered/Resolved]
